FAERS Safety Report 20230548 (Version 2)
Quarter: 2022Q2

REPORT INFORMATION
  Report Type: Spontaneous
  Country: ES (occurrence: ES)
  Receive Date: 20211227
  Receipt Date: 20220614
  Transmission Date: 20220720
  Serious: Yes (Other)
  Sender: FDA-Public Use
  Company Number: ES-SUN PHARMACEUTICAL INDUSTRIES LTD-2021R1-321748

PATIENT
  Age: 21 Year
  Sex: Male
  Weight: 67 kg

DRUGS (2)
  1. IMATINIB [Suspect]
     Active Substance: IMATINIB
     Indication: Premature ageing
     Dosage: 200 MILLIGRAM, DAILY
     Route: 065
     Dates: end: 202006
  2. IMATINIB [Suspect]
     Active Substance: IMATINIB
     Dosage: 400 MILLIGRAM, DAILY
     Route: 065
     Dates: start: 202012

REACTIONS (1)
  - Therapy partial responder [Unknown]
